FAERS Safety Report 17043742 (Version 1)
Quarter: 2019Q4

REPORT INFORMATION
  Report Type: Spontaneous
  Country: US (occurrence: US)
  Receive Date: 20191115
  Receipt Date: 20191115
  Transmission Date: 20200122
  Serious: Yes (Disabling)
  Sender: FDA-Public Use
  Company Number: None

PATIENT
  Age: 64 Year
  Sex: Female
  Weight: 108 kg

DRUGS (23)
  1. CIPROFLOXACIN. [Suspect]
     Active Substance: CIPROFLOXACIN
     Indication: URINARY TRACT INFECTION
     Dosage: ?          QUANTITY:1 TABLET(S);?
     Route: 048
     Dates: start: 20191028, end: 20191105
  2. SINGULAIR [Concomitant]
     Active Substance: MONTELUKAST SODIUM
  3. NEXIUM [Concomitant]
     Active Substance: ESOMEPRAZOLE MAGNESIUM
  4. CARDIZEM [Concomitant]
     Active Substance: DILTIAZEM HYDROCHLORIDE
  5. REQUIP [Concomitant]
     Active Substance: ROPINIROLE HYDROCHLORIDE
  6. ALBUTEROL. [Concomitant]
     Active Substance: ALBUTEROL
  7. CIPROFLOXACIN. [Suspect]
     Active Substance: CIPROFLOXACIN
     Indication: URINARY TRACT INFECTION
     Dosage: ?          QUANTITY:1 TABLET(S);?
     Route: 048
     Dates: start: 20191105, end: 20191107
  8. LASIX [Concomitant]
     Active Substance: FUROSEMIDE
  9. VIT D [Concomitant]
     Active Substance: VITAMIN D NOS
  10. MUCINEX [Concomitant]
     Active Substance: GUAIFENESIN
  11. SYNTHROID [Concomitant]
     Active Substance: LEVOTHYROXINE SODIUM
  12. CLARINEX [Concomitant]
     Active Substance: DESLORATADINE
  13. DITROPAN [Concomitant]
     Active Substance: OXYBUTYNIN CHLORIDE
  14. FLEXERIL [Concomitant]
     Active Substance: CYCLOBENZAPRINE HYDROCHLORIDE
  15. TRAMADOL. [Concomitant]
     Active Substance: TRAMADOL
  16. CELEBREX [Concomitant]
     Active Substance: CELECOXIB
  17. POTASSIUM [Concomitant]
     Active Substance: POTASSIUM
  18. BIPAP [Concomitant]
     Active Substance: DEVICE
  19. TYLENOL [Concomitant]
     Active Substance: ACETAMINOPHEN
  20. REPATHA [Concomitant]
     Active Substance: EVOLOCUMAB
  21. VITAMIN B12 [Concomitant]
     Active Substance: CYANOCOBALAMIN
  22. LAMICTAL [Concomitant]
     Active Substance: LAMOTRIGINE
  23. CYTOMEL [Concomitant]
     Active Substance: LIOTHYRONINE SODIUM

REACTIONS (6)
  - Tremor [None]
  - Headache [None]
  - Tendon disorder [None]
  - Mental impairment [None]
  - Pain in extremity [None]
  - Malaise [None]

NARRATIVE: CASE EVENT DATE: 20191028
